FAERS Safety Report 20092863 (Version 2)
Quarter: 2021Q4

REPORT INFORMATION
  Report Type: Spontaneous
  Country: GB (occurrence: GB)
  Receive Date: 20211120
  Receipt Date: 20211216
  Transmission Date: 20220303
  Serious: Yes (Other)
  Sender: FDA-Public Use
  Company Number: GB-JNJFOC-20211106477

PATIENT
  Age: 88 Year
  Sex: Male

DRUGS (2)
  1. ABIRATERONE [Suspect]
     Active Substance: ABIRATERONE
     Indication: Prostate cancer
     Route: 048
     Dates: start: 20210420
  2. DEXAMETHASONE [Concomitant]
     Active Substance: DEXAMETHASONE
     Indication: Prostate cancer
     Route: 048
     Dates: start: 20210616

REACTIONS (5)
  - Urine flow decreased [Not Recovered/Not Resolved]
  - Fatigue [Unknown]
  - Prostatic specific antigen increased [Unknown]
  - Joint swelling [Recovering/Resolving]
  - Urinary tract infection [Unknown]

NARRATIVE: CASE EVENT DATE: 20211001
